FAERS Safety Report 7524148-8 (Version None)
Quarter: 2011Q2

REPORT INFORMATION
  Report Type: 
  Country: None (occurrence: None)
  Receive Date: 20110606
  Receipt Date: 20110526
  Transmission Date: 20111010
  Serious: No
  Sender: FDA-Public Use
  Company Number: US-BIOGENIDEC-2010BI033303

PATIENT
  Age: 36 Year
  Sex: Male

DRUGS (3)
  1. TYSABRI [Suspect]
     Indication: MULTIPLE SCLEROSIS
     Route: 042
     Dates: start: 20070101, end: 20080801
  2. COPAXONE [Concomitant]
     Indication: MULTIPLE SCLEROSIS
  3. TYSABRI [Suspect]
     Route: 042
     Dates: start: 20100201

REACTIONS (7)
  - MUSCULOSKELETAL DISORDER [None]
  - ASTHENIA [None]
  - DIPLOPIA [None]
  - MULTIPLE SCLEROSIS RELAPSE [None]
  - MUSCULAR WEAKNESS [None]
  - HEMIPARESIS [None]
  - VISION BLURRED [None]
